FAERS Safety Report 4990198-9 (Version None)
Quarter: 2006Q2

REPORT INFORMATION
  Report Type: 
  Country: None (occurrence: None)
  Receive Date: 20060501
  Receipt Date: 20060501
  Transmission Date: 20061013
  Serious: Yes (Death)
  Sender: FDA-Public Use
  Company Number: None

PATIENT
  Age: 39 Year
  Sex: Female

DRUGS (3)
  1. RITUXIMAB       GENENTECH [Suspect]
     Indication: CORONARY ARTERY DISEASE
     Dosage: 1000MG    Q2W     IV DRIP
     Route: 041
     Dates: start: 20060410, end: 20060410
  2. RITUXIMAB       GENENTECH [Suspect]
     Indication: SYSTEMIC LUPUS ERYTHEMATOSUS
     Dosage: 1000MG    Q2W     IV DRIP
     Route: 041
     Dates: start: 20060410, end: 20060410
  3. RITUXIMAB       GENENTECH [Suspect]
     Indication: VASCULITIS
     Dosage: 1000MG    Q2W     IV DRIP
     Route: 041
     Dates: start: 20060410, end: 20060410

REACTIONS (6)
  - CARDIO-RESPIRATORY ARREST [None]
  - DIZZINESS [None]
  - ELECTROMECHANICAL DISSOCIATION [None]
  - FALL [None]
  - LUNG DISORDER [None]
  - NAUSEA [None]
